FAERS Safety Report 22635387 (Version 1)
Quarter: 2023Q2

REPORT INFORMATION
  Report Type: Spontaneous
  Country: ES (occurrence: ES)
  Receive Date: 20230623
  Receipt Date: 20230623
  Transmission Date: 20230721
  Serious: Yes (Other)
  Sender: FDA-Public Use
  Company Number: ES-BIOVITRUM-2023-ES-011328

PATIENT
  Age: 12 Year
  Sex: Male

DRUGS (1)
  1. ANAKINRA [Suspect]
     Active Substance: ANAKINRA
     Indication: Pericarditis
     Dosage: 100MG/24H
     Route: 058
     Dates: start: 200911

REACTIONS (3)
  - Off label use [Unknown]
  - Headache [Recovered/Resolved]
  - Intracranial pressure increased [Recovered/Resolved]

NARRATIVE: CASE EVENT DATE: 20091101
